FAERS Safety Report 10917552 (Version 2)
Quarter: 2015Q2

REPORT INFORMATION
  Report Type: Spontaneous
  Country: US (occurrence: US)
  Receive Date: 20150316
  Receipt Date: 20150515
  Transmission Date: 20150821
  Serious: No
  Sender: FDA-Public Use
  Company Number: US-PFIZER INC-2015092648

PATIENT
  Age: 74 Year
  Sex: Male

DRUGS (3)
  1. ZYVOX [Suspect]
     Active Substance: LINEZOLID
     Indication: OSTEOMYELITIS
     Dosage: UNK
  2. ZYVOX [Suspect]
     Active Substance: LINEZOLID
     Indication: LOCALISED INFECTION
  3. ZYVOX [Suspect]
     Active Substance: LINEZOLID
     Indication: DIABETIC FOOT

REACTIONS (1)
  - Product use issue [Unknown]
